FAERS Safety Report 23801202 (Version 1)
Quarter: 2024Q2

REPORT INFORMATION
  Report Type: Spontaneous
  Country: US (occurrence: US)
  Receive Date: 20240430
  Receipt Date: 20240430
  Transmission Date: 20240716
  Serious: No
  Sender: FDA-Public Use
  Company Number: US-SA-SAC20240425000114

PATIENT
  Sex: Female
  Weight: 48 kg

DRUGS (6)
  1. DUPIXENT [Suspect]
     Active Substance: DUPILUMAB
     Indication: Dermatitis atopic
     Dosage: 300 MG, QOW
     Route: 058
  2. LYSINE [Concomitant]
     Active Substance: LYSINE
  3. VITAMIN B12 [Concomitant]
     Active Substance: CYANOCOBALAMIN
  4. ASCORBIC ACID\BIOFLAVONOIDS [Concomitant]
     Active Substance: ASCORBIC ACID\BIOFLAVONOIDS
  5. MAGNESIUM [Concomitant]
     Active Substance: MAGNESIUM
  6. COENZYME COQ10 [Concomitant]

REACTIONS (3)
  - Headache [Unknown]
  - Formication [Unknown]
  - Pruritus [Unknown]
